FAERS Safety Report 9971610 (Version 1)
Quarter: 2014Q1

REPORT INFORMATION
  Report Type: Report from Study
  Country: US (occurrence: US)
  Receive Date: 20140306
  Receipt Date: 20140306
  Transmission Date: 20141002
  Serious: No
  Sender: FDA-Public Use
  Company Number: US-ABBVIE-13P-163-1149379-00

PATIENT
  Sex: Female
  Weight: 90.8 kg

DRUGS (2)
  1. HUMIRA [Suspect]
     Indication: PSORIASIS
     Route: 058
     Dates: start: 201010
  2. HUMIRA [Suspect]
     Indication: PSORIATIC ARTHROPATHY

REACTIONS (9)
  - Device malfunction [Unknown]
  - Incorrect dose administered [Unknown]
  - Psoriatic arthropathy [Unknown]
  - Pain [Unknown]
  - Swelling [Unknown]
  - Erythema [Unknown]
  - Erythema [Unknown]
  - Erythema [Unknown]
  - Erythema [Unknown]
